FAERS Safety Report 4679780-6 (Version None)
Quarter: 2005Q2

REPORT INFORMATION
  Report Type: 
  Country: None (occurrence: None)
  Receive Date: 20050602
  Receipt Date: 20050131
  Transmission Date: 20051028
  Serious: Yes (Other)
  Sender: FDA-Public Use
  Company Number: HQ3050801JUL2002

PATIENT
  Sex: Female

DRUGS (11)
  1. ENBREL [Suspect]
     Indication: RHEUMATOID ARTHRITIS
     Route: 058
     Dates: start: 19990801, end: 19990906
  2. IMOVANE [Concomitant]
  3. ALVEDON [Concomitant]
  4. OVESTERIN [Concomitant]
  5. LASIX [Concomitant]
  6. ANDAPSIN [Concomitant]
  7. INSULIN HUMAN [Concomitant]
  8. ACTRAPID HUMAN [Concomitant]
  9. PLENDIL [Concomitant]
  10. VAGIFEM [Concomitant]
  11. LOSEC [Concomitant]

REACTIONS (2)
  - PLATELET COUNT INCREASED [None]
  - SYSTEMIC LUPUS ERYTHEMATOSUS [None]
